FAERS Safety Report 4587072-9 (Version None)
Quarter: 2005Q1

REPORT INFORMATION
  Report Type: 
  Country: None (occurrence: None)
  Receive Date: 20050214
  Receipt Date: 20050203
  Transmission Date: 20050727
  Serious: Yes (Death)
  Sender: FDA-Public Use
  Company Number: USA-2005-0018722

PATIENT
  Age: 54 Year
  Sex: Female
  Weight: 59 kg

DRUGS (2)
  1. MORPHINE SULFATE [Suspect]
     Indication: PAIN
     Dosage: EPIDURAL
     Route: 008
  2. BUPIVACAINE [Suspect]
     Indication: PAIN
     Dosage: INTRAVENOUS
     Route: 042

REACTIONS (16)
  - APALLIC SYNDROME [None]
  - BRAIN NEOPLASM [None]
  - CARDIAC ARREST [None]
  - CHOKING SENSATION [None]
  - CONDITION AGGRAVATED [None]
  - DISEASE PROGRESSION [None]
  - DIZZINESS [None]
  - HYDROCEPHALUS [None]
  - LABILE BLOOD PRESSURE [None]
  - LETHARGY [None]
  - LOSS OF CONSCIOUSNESS [None]
  - MYDRIASIS [None]
  - NAUSEA [None]
  - RESPIRATORY ARREST [None]
  - SINUS BRADYCARDIA [None]
  - TUMOUR HAEMORRHAGE [None]
